FAERS Safety Report 8585856-3 (Version None)
Quarter: 2012Q3

REPORT INFORMATION
  Report Type: 
  Country: None (occurrence: None)
  Receive Date: 20120810
  Receipt Date: 20070226
  Transmission Date: 20120928
  Serious: Yes (Other)
  Sender: FDA-Public Use
  Company Number: CO-PFIZER INC-2012191725

PATIENT
  Age: 74 Year
  Sex: Female

DRUGS (7)
  1. NORVASC [Suspect]
     Indication: HYPERTENSION
     Dosage: 5 MG, ONCE DAILY
  2. LIPITOR [Suspect]
     Indication: DYSLIPIDAEMIA
     Dosage: 10 MG, TWICE DAILY
  3. ACETYLSALICYLIC ACID [Concomitant]
     Dosage: 100 MG, ONCE DAILY
  4. LIPITOR [Suspect]
     Dosage: 10 MG, ONCE DAILY
  5. GLIBENCLAMIDE [Concomitant]
     Dosage: 5 MG, TWICE DAILY
  6. ACETYLSALICYLIC ACID [Concomitant]
     Dosage: 100 MG, TWICE DAILY
  7. ACCURETIC [Suspect]
     Indication: HYPERTENSION
     Dosage: [QUINAPRIL HCL 20 MG]/ [HYDROCHLOROTHIAZIDE 12.5 MG] 1DF, ONCE DAILY

REACTIONS (2)
  - HYPERTENSIVE EMERGENCY [None]
  - PALPITATIONS [None]
